FAERS Safety Report 10971704 (Version 1)
Quarter: 2015Q1

REPORT INFORMATION
  Report Type: Report from Study
  Country: US (occurrence: US)
  Receive Date: 20150331
  Receipt Date: 20150331
  Transmission Date: 20150721
  Serious: Yes (Other)
  Sender: FDA-Public Use
  Company Number: PHEH2015US006118

PATIENT
  Sex: Male

DRUGS (1)
  1. GILENYA [Suspect]
     Active Substance: FINGOLIMOD HYDROCHLORIDE
     Indication: PRODUCT USED FOR UNKNOWN INDICATION
     Dosage: 0.5 MG, QD
     Route: 048

REACTIONS (7)
  - Pineal gland cyst [Unknown]
  - Dementia Alzheimer^s type [Unknown]
  - Carpal tunnel syndrome [Unknown]
  - Platelet aggregation inhibition [Unknown]
  - Pain [Unknown]
  - Cardiomyopathy [Unknown]
  - Hypertension [Unknown]
